FAERS Safety Report 19380947 (Version 1)
Quarter: 2021Q2

REPORT INFORMATION
  Report Type: Spontaneous
  Country: US (occurrence: US)
  Receive Date: 20210605
  Receipt Date: 20210605
  Transmission Date: 20210717
  Serious: No
  Sender: FDA-Public Use
  Company Number: None

PATIENT
  Age: 61 Year
  Sex: Female

DRUGS (1)
  1. FORTEO [Suspect]
     Active Substance: TERIPARATIDE
     Dosage: ?          OTHER STRENGTH:60MCG/2.4ML;?
     Route: 058
     Dates: start: 202105

REACTIONS (2)
  - Hypotension [None]
  - Orthostatic hypotension [None]

NARRATIVE: CASE EVENT DATE: 20210510
